FAERS Safety Report 6503165-0 (Version None)
Quarter: 2009Q4

REPORT INFORMATION
  Report Type: 
  Country: None (occurrence: None)
  Receive Date: 20091201
  Receipt Date: 20090729
  Transmission Date: 20100525
  Serious: Yes (Hospitalization)
  Sender: FDA-Public Use
  Company Number: 2009SP017397

PATIENT
  Age: 47 Year
  Sex: Female
  Weight: 88.4514 kg

DRUGS (7)
  1. NUVARING [Suspect]
     Indication: CONTRACEPTION
     Dosage: 1 DF; VAG
     Route: 067
     Dates: start: 20070325, end: 20070401
  2. NUVARING [Suspect]
     Indication: MENSTRUATION IRREGULAR
     Dosage: 1 DF; VAG
     Route: 067
     Dates: start: 20070325, end: 20070401
  3. METFORMIN [Concomitant]
  4. ATACAND [Concomitant]
  5. LYRICA [Concomitant]
  6. GLUCOPHAGE [Concomitant]
  7. HYDROCHLOROTHIAZIDE [Concomitant]

REACTIONS (1)
  - DEEP VEIN THROMBOSIS [None]
